FAERS Safety Report 18003521 (Version 2)
Quarter: 2021Q2

REPORT INFORMATION
  Report Type: Report from Study
  Country: JP (occurrence: JP)
  Receive Date: 20200710
  Receipt Date: 20210524
  Transmission Date: 20210717
  Serious: Yes (Other)
  Sender: FDA-Public Use
  Company Number: JP-CELLTRION INC.-2020JP023987

PATIENT

DRUGS (7)
  1. CT?P13 [Suspect]
     Active Substance: INFLIXIMAB-DYYB
     Dosage: 320 MG (WEIGHT: 64 KG)
     Route: 041
     Dates: start: 20190319, end: 20190319
  2. CT?P13 [Suspect]
     Active Substance: INFLIXIMAB-DYYB
     Dosage: 300 MG (WEIGHT: 61 KG)
     Route: 041
     Dates: start: 20201126, end: 20201126
  3. CT?P13 [Suspect]
     Active Substance: INFLIXIMAB-DYYB
     Indication: COLITIS ULCERATIVE
     Dosage: 315 MG (WEIGHT: 63 KG)
     Route: 041
     Dates: start: 20181127, end: 20181127
  4. CT?P13 [Suspect]
     Active Substance: INFLIXIMAB-DYYB
     Dosage: 325 MG (WEIGHT: 65 KG)
     Route: 041
     Dates: start: 20190122, end: 20190122
  5. CT?P13 [Suspect]
     Active Substance: INFLIXIMAB-DYYB
     Dosage: 320 MG (WEIGHT:63.5 KG)
     Route: 041
     Dates: start: 20191218, end: 20191218
  6. CT?P13 [Suspect]
     Active Substance: INFLIXIMAB-DYYB
     Dosage: 325 MG (WEIGHT: 65 KG)
     Route: 041
     Dates: start: 20190509, end: 20190509
  7. MESALAZINE [Concomitant]
     Active Substance: MESALAMINE
     Dosage: 3200 MILLIGRAM/DAY
     Route: 048

REACTIONS (13)
  - Cerebral infarction [Unknown]
  - Cerebrovascular stenosis [Unknown]
  - Constipation [Recovered/Resolved]
  - Underdose [Unknown]
  - Cardiac failure acute [Unknown]
  - Carotid artery occlusion [Unknown]
  - Upper respiratory tract infection [Recovered/Resolved]
  - Overdose [Unknown]
  - Product use issue [Unknown]
  - Pleural effusion [Unknown]
  - Hyperkalaemia [Unknown]
  - Chronic obstructive pulmonary disease [Not Recovered/Not Resolved]
  - Off label use [Unknown]

NARRATIVE: CASE EVENT DATE: 20190512
